FAERS Safety Report 18713533 (Version 2)
Quarter: 2021Q2

REPORT INFORMATION
  Report Type: Spontaneous
  Country: US (occurrence: US)
  Receive Date: 20210107
  Receipt Date: 20210409
  Transmission Date: 20210717
  Serious: Yes (Other)
  Sender: FDA-Public Use
  Company Number: US-PFIZER INC-2016338321

PATIENT
  Age: 84 Year
  Sex: Female

DRUGS (20)
  1. LYRICA [Suspect]
     Active Substance: PREGABALIN
     Indication: DIABETIC NEUROPATHY
     Dosage: 150 MG, 3X/DAY
     Route: 048
     Dates: start: 20160121
  2. TIZANIDINE HCL [Concomitant]
     Active Substance: TIZANIDINE HYDROCHLORIDE
     Indication: FIBROMYALGIA
     Dosage: 4 MG, 3X/DAY
     Dates: start: 20160503
  3. LISINOPRIL. [Concomitant]
     Active Substance: LISINOPRIL
     Indication: ESSENTIAL HYPERTENSION
     Dosage: 40 MG, DAILY
     Dates: start: 20160503
  4. GLIPIZIDE. [Concomitant]
     Active Substance: GLIPIZIDE
     Indication: DIABETIC NEUROPATHY
     Dosage: 10 MG, 1X/DAY (AT LUNCH)
     Dates: start: 20160503
  5. ALLOPURINOL. [Concomitant]
     Active Substance: ALLOPURINOL
     Indication: GOUT
     Dosage: 200 MG, 1X/DAY (BEDTIME)
     Dates: start: 20160503
  6. PRESERVISION AREDS [Concomitant]
     Active Substance: MINERALS\VITAMINS
     Dosage: UNK, DAILY
     Route: 048
  7. ASPIRIN E.C [Concomitant]
     Active Substance: ASPIRIN
     Dosage: 325 MG, DAILY
     Route: 048
  8. OCUVITE [Concomitant]
     Active Substance: VITAMINS
     Dosage: UNK, DAILY
     Route: 048
  9. LEVOTHYROXINE SODIUM. [Concomitant]
     Active Substance: LEVOTHYROXINE SODIUM
     Indication: HYPOTHYROIDISM
     Dosage: 50 UG, ALTERNATE DAY (EVERY OTHER MORNING)
     Dates: start: 20160503
  10. AMOXICILLIN. [Concomitant]
     Active Substance: AMOXICILLIN
     Indication: HIP ARTHROPLASTY
     Dosage: 2000 MG (ONE HOUR PRIOR TO DENTAL PROCEDURES)
     Dates: start: 20160503
  11. MELOXICAM. [Concomitant]
     Active Substance: MELOXICAM
     Dosage: 15 MG, DAILY
     Route: 048
  12. VITAMIN C [Concomitant]
     Active Substance: ASCORBIC ACID
     Dosage: UNK, 1X/DAY
     Route: 048
  13. IRON SUPPLEMENT [Concomitant]
     Active Substance: IRON
     Dosage: 325 MG, DAILY
     Route: 048
  14. LYRICA [Suspect]
     Active Substance: PREGABALIN
     Indication: FIBROMYALGIA
     Dosage: 150 MG, 3X/DAY
     Route: 048
     Dates: start: 20190308
  15. COLCRYS [Concomitant]
     Active Substance: COLCHICINE
     Indication: GOUT
     Dosage: 0.6 MG (2 (TWO) TABLET NOW, AND  ONE TABLET ONE HOUR LATER, THEN ONE TWICE A DAY)
     Dates: start: 20160503
  16. ATENOLOL. [Concomitant]
     Active Substance: ATENOLOL
     Indication: ESSENTIAL HYPERTENSION
     Dosage: 50 MG, DAILY
     Dates: start: 20160503
  17. FUROSEMIDE. [Concomitant]
     Active Substance: FUROSEMIDE
     Indication: ESSENTIAL HYPERTENSION
     Dosage: 40 MG, 1X/DAY
     Dates: start: 20160503
  18. HUMULIN N [Concomitant]
     Active Substance: INSULIN HUMAN
     Indication: DIABETIC NEUROPATHY
     Dosage: 30 IU, 2X/DAY (20 UNITS IN THE AM SUSPENSION 10 UNITS IN THE PM)
     Dates: start: 20160503
  19. METFORMIN HCL [Concomitant]
     Active Substance: METFORMIN HYDROCHLORIDE
     Indication: DIABETIC NEUROPATHY
     Dosage: 1000 MG, 1X/DAY (AT DINNER)
     Dates: start: 20160503
  20. BIOTIN [Concomitant]
     Active Substance: BIOTIN
     Dosage: 1000 UG, DAILY
     Route: 048

REACTIONS (1)
  - COVID-19 [Unknown]
